FAERS Safety Report 20002983 (Version 2)
Quarter: 2021Q4

REPORT INFORMATION
  Report Type: Spontaneous
  Country: GB (occurrence: GB)
  Receive Date: 20211027
  Receipt Date: 20211112
  Transmission Date: 20220303
  Serious: Yes (Life-Threatening)
  Sender: FDA-Public Use
  Company Number: None

PATIENT
  Age: 78 Year
  Sex: Male
  Weight: 88 kg

DRUGS (3)
  1. SILDENAFIL CITRATE [Interacting]
     Active Substance: SILDENAFIL CITRATE
     Dosage: 50 MG
     Dates: start: 20210712
  2. IOPIDINE [Interacting]
     Active Substance: APRACLONIDINE HYDROCHLORIDE
     Dosage: 5 MG/ML
     Route: 050
     Dates: start: 20210713
  3. TIMOLOL [Suspect]
     Active Substance: TIMOLOL
     Dosage: 25 %
     Dates: start: 20210713

REACTIONS (2)
  - Drug interaction [Recovered/Resolved]
  - Cardiac arrest [Unknown]

NARRATIVE: CASE EVENT DATE: 20210713
